FAERS Safety Report 5906899-1 (Version None)
Quarter: 2008Q4

REPORT INFORMATION
  Report Type: 
  Country: None (occurrence: None)
  Receive Date: 20081003
  Receipt Date: 20080924
  Transmission Date: 20090506
  Serious: Yes (Other)
  Sender: FDA-Public Use
  Company Number: FR-SP-2008-03010

PATIENT
  Age: 77 Year
  Sex: Male

DRUGS (1)
  1. IMMUCYST [Suspect]
     Indication: IMMUNISATION
     Route: 043

REACTIONS (4)
  - BALANITIS [None]
  - BOVINE TUBERCULOSIS [None]
  - PENILE ULCERATION [None]
  - TUBERCULIN TEST POSITIVE [None]
